FAERS Safety Report 10519394 (Version 1)
Quarter: 2014Q4

REPORT INFORMATION
  Report Type: Report from Study
  Country: CA (occurrence: CA)
  Receive Date: 20141015
  Receipt Date: 20141015
  Transmission Date: 20150528
  Serious: Yes (Death, Hospitalization)
  Sender: FDA-Public Use
  Company Number: CA-JNJFOC-20141008681

PATIENT
  Age: 87 Year
  Sex: Male

DRUGS (7)
  1. TAMSULOSIN [Concomitant]
     Active Substance: TAMSULOSIN
     Route: 065
  2. BENZODIAZEPINES NOS [Concomitant]
     Active Substance: BENZODIAZEPINE
     Route: 065
  3. TYLENOL WITH CODEINE [Suspect]
     Active Substance: ACETAMINOPHEN\CODEINE PHOSPHATE
     Indication: PRODUCT USED FOR UNKNOWN INDICATION
     Dosage: 50 TIMES
     Route: 065
     Dates: start: 20090519, end: 20090519
  4. IMOVANE [Concomitant]
     Active Substance: ZOPICLONE
     Route: 065
  5. CELEXA [Concomitant]
     Active Substance: CITALOPRAM HYDROBROMIDE
     Route: 065
  6. SLEEPING PILLS (NOS) [Concomitant]
     Active Substance: UNSPECIFIED INGREDIENT
     Route: 065
  7. WELLBUTRIN [Concomitant]
     Active Substance: BUPROPION HYDROCHLORIDE
     Route: 065

REACTIONS (2)
  - Pneumonia aspiration [Fatal]
  - Overdose [Fatal]

NARRATIVE: CASE EVENT DATE: 20090519
